FAERS Safety Report 23133394 (Version 1)
Quarter: 2023Q4

REPORT INFORMATION
  Report Type: Spontaneous
  Country: US (occurrence: US)
  Receive Date: 20231101
  Receipt Date: 20231101
  Transmission Date: 20240109
  Serious: Yes (Other)
  Sender: FDA-Public Use
  Company Number: US-AstraZeneca-2023-9618

PATIENT
  Age: 72 Year
  Sex: Female

DRUGS (2)
  1. BUDESONIDE [Suspect]
     Active Substance: BUDESONIDE
     Dosage: ROA: RESPIRATORY INHALATION, 60 DOSES?DAILY DOSE: 90 MICROGRAM
     Route: 055
     Dates: start: 20230717
  2. FASENRA [Suspect]
     Active Substance: BENRALIZUMAB
     Route: 058
     Dates: start: 20221103

REACTIONS (11)
  - Clostridium difficile infection [Unknown]
  - Pertussis [Unknown]
  - Illness [Unknown]
  - Symptom recurrence [Not Recovered/Not Resolved]
  - Malaise [Unknown]
  - Feeling abnormal [Unknown]
  - COVID-19 [Unknown]
  - Epstein-Barr virus infection [Unknown]
  - Condition aggravated [Not Recovered/Not Resolved]
  - Therapeutic product effect decreased [Unknown]
  - Inappropriate schedule of product administration [Unknown]

NARRATIVE: CASE EVENT DATE: 20230401
